FAERS Safety Report 6989931-6 (Version None)
Quarter: 2010Q3

REPORT INFORMATION
  Report Type: 
  Country: None (occurrence: None)
  Receive Date: 20100916
  Receipt Date: 20100402
  Transmission Date: 20110219
  Serious: Yes (Life-Threatening, Hospitalization)
  Sender: FDA-Public Use
  Company Number: FR-PFIZER INC-2010008908

PATIENT
  Sex: Female

DRUGS (16)
  1. LYRICA [Suspect]
     Dosage: 300 MG, 2X/DAY
     Route: 048
     Dates: start: 20081001, end: 20091023
  2. NEBIVOLOL [Suspect]
     Dosage: 5 MG, 1X/DAY
     Route: 048
     Dates: start: 20070101, end: 20091028
  3. ATHYMIL [Suspect]
     Dosage: 90 MG, 1X/DAY
     Route: 048
     Dates: start: 20060101, end: 20091029
  4. ATHYMIL [Suspect]
     Dosage: UNK
     Dates: start: 20091027
  5. ATHYMIL [Suspect]
     Dosage: UNK
     Dates: start: 20091029, end: 20091029
  6. TRIATEC [Suspect]
     Dosage: 10 MG, 1X/DAY
     Route: 048
     Dates: start: 20060101, end: 20091027
  7. TRIATEC [Suspect]
     Dosage: UNK
     Dates: start: 20091027, end: 20091027
  8. TRIATEC [Suspect]
     Dosage: 1.25 MG, 1X/DAY
     Dates: start: 20091201
  9. ESIDRIX [Suspect]
     Dosage: 25 MG, 1X/DAY
     Route: 048
     Dates: start: 20081201, end: 20091029
  10. ESIDRIX [Suspect]
     Dosage: UNK
     Dates: start: 20091027
  11. ESIDRIX [Suspect]
     Dosage: UNK
     Dates: start: 20091029, end: 20091029
  12. TETRAZEPAM [Suspect]
     Dosage: 50 MG, 1X/DAY
     Route: 048
     Dates: start: 20090601, end: 20091027
  13. TETRAZEPAM [Suspect]
     Dosage: UNK
     Dates: start: 20091027, end: 20091027
  14. STRUCTUM [Concomitant]
     Dosage: 500 MG, 2X/DAY
     Route: 048
     Dates: start: 20090801, end: 20091023
  15. CALTRATE + D [Concomitant]
     Dosage: 500MG/400 UI X2 PER DAY
     Dates: start: 20070101
  16. OXYCONTIN [Concomitant]
     Dosage: 60 MG, 2X/DAY
     Dates: start: 20090701

REACTIONS (1)
  - BONE MARROW FAILURE [None]
